FAERS Safety Report 5163852-6 (Version None)
Quarter: 2006Q4

REPORT INFORMATION
  Report Type: 
  Country: None (occurrence: None)
  Receive Date: 20061124
  Receipt Date: 20061111
  Transmission Date: 20070319
  Serious: Yes (Other)
  Sender: FDA-Public Use
  Company Number: 2006100619

PATIENT
  Age: 8 Year
  Sex: Female
  Weight: 29 kg

DRUGS (18)
  1. VFEND [Suspect]
     Indication: PNEUMONIA FUNGAL
     Dosage: 200 MG (100 MG, 2 IN 1 D), ORAL
     Route: 048
     Dates: start: 20060725, end: 20060803
  2. CYTOXAN [Suspect]
     Indication: NEOPLASM MALIGNANT
     Dosage: 75 MG (75 MG, 1 IN 1 D), ORAL
     Route: 048
     Dates: start: 20060718, end: 20060722
  3. CYTOXAN [Suspect]
     Indication: NEOPLASM MALIGNANT
     Dosage: 75 MG (75 MG, 1 IN 1 D), ORAL
     Route: 048
     Dates: start: 20060728, end: 20060812
  4. CELEBREX [Concomitant]
  5. FENOFIBRATE [Concomitant]
  6. THALIDOMIDE (THALIDOMIDE) [Concomitant]
  7. ETOPOSIDE [Concomitant]
  8. DEXAMETHASONE TAB [Concomitant]
  9. ENALAPRIL MALEATE [Concomitant]
  10. FUROSEMIDE [Concomitant]
  11. TYLENOL W/ CODEINE [Concomitant]
  12. BENADRYL [Concomitant]
  13. ALBUTEROL [Concomitant]
  14. CASPOFUNGIN (CASPOFUNGIN) [Concomitant]
  15. PREVACID [Concomitant]
  16. TOBRAMYCIN [Concomitant]
  17. FORTAZ [Concomitant]
  18. CIPROFLOXACIN [Concomitant]

REACTIONS (4)
  - CYSTITIS [None]
  - DRUG INTERACTION [None]
  - GLUCOSE URINE PRESENT [None]
  - PNEUMONIA FUNGAL [None]
